FAERS Safety Report 8795169 (Version 2)
Quarter: 2015Q3

REPORT INFORMATION
  Report Type: Report from Study
  Country: US (occurrence: US)
  Receive Date: 20120917
  Receipt Date: 20150706
  Transmission Date: 20151125
  Serious: Yes (Death)
  Sender: FDA-Public Use
  Company Number: US-ROCHE-1128581

PATIENT
  Sex: Male

DRUGS (10)
  1. ONDANSETRON HCL [Concomitant]
     Active Substance: ONDANSETRON HYDROCHLORIDE
     Route: 042
  2. TEGRETOL-XR [Concomitant]
     Active Substance: CARBAMAZEPINE
     Route: 048
  3. AVASTIN [Suspect]
     Active Substance: BEVACIZUMAB
     Indication: BRAIN NEOPLASM MALIGNANT
     Route: 042
     Dates: start: 20080109
  4. ATROPIN POS [Concomitant]
     Route: 058
  5. VITAMIN E [Concomitant]
     Active Substance: .ALPHA.-TOCOPHEROL
     Route: 048
  6. IRINOTECAN [Suspect]
     Active Substance: IRINOTECAN
     Indication: PRODUCT USED FOR UNKNOWN INDICATION
     Route: 042
     Dates: start: 20080109
  7. KEPPRA [Concomitant]
     Active Substance: LEVETIRACETAM
     Route: 048
  8. DEXAMETHASONE. [Concomitant]
     Active Substance: DEXAMETHASONE
     Route: 042
  9. VITAMIN C [Concomitant]
     Active Substance: ASCORBIC ACID
     Route: 048
  10. CIPROFLOXACIN HCL [Concomitant]
     Active Substance: CIPROFLOXACIN HYDROCHLORIDE
     Route: 048

REACTIONS (18)
  - Cough [Unknown]
  - Partial seizures [Unknown]
  - Nausea [Unknown]
  - Death [Fatal]
  - Respiratory tract congestion [Unknown]
  - Hemiparesis [Unknown]
  - Hypoaesthesia [Unknown]
  - Off label use [Unknown]
  - Nasal congestion [Unknown]
  - Ear pain [Unknown]
  - Abdominal pain [Recovered/Resolved]
  - Eye pain [Unknown]
  - Gait disturbance [Unknown]
  - Weight decreased [Recovered/Resolved]
  - Ataxia [Unknown]
  - Diarrhoea [Unknown]
  - Headache [Unknown]
  - Pyrexia [Unknown]
